FAERS Safety Report 8483597-4 (Version None)
Quarter: 2012Q3

REPORT INFORMATION
  Report Type: 
  Country: None (occurrence: None)
  Receive Date: 20120702
  Receipt Date: 20120628
  Transmission Date: 20120928
  Serious: Yes (Hospitalization)
  Sender: FDA-Public Use
  Company Number: US-MERCK-1206USA05432

PATIENT
  Age: 59 Year
  Sex: Male

DRUGS (1)
  1. ZOCOR [Suspect]
     Indication: BLOOD CHOLESTEROL INCREASED
     Route: 048
     Dates: start: 20010101, end: 20091001

REACTIONS (9)
  - LIGAMENT RUPTURE [None]
  - CARPAL TUNNEL SYNDROME [None]
  - LIGAMENT INJURY [None]
  - XANTHOPSIA [None]
  - MUSCLE SPASMS [None]
  - YELLOW SKIN [None]
  - HEART RATE INCREASED [None]
  - CHROMATURIA [None]
  - DIZZINESS [None]
